FAERS Safety Report 4540555-X (Version None)
Quarter: 2004Q4

REPORT INFORMATION
  Report Type: 
  Country: None (occurrence: None)
  Receive Date: 20041228
  Receipt Date: 20041228
  Transmission Date: 20050328
  Serious: Yes (Death)
  Sender: FDA-Public Use
  Company Number: None

PATIENT
  Age: 75 Year
  Weight: 68.0396 kg

DRUGS (3)
  1. LEVAQUIN [Suspect]
     Indication: CANDIDIASIS
     Dosage: 1 TABLET DAILY ORAL
     Route: 048
     Dates: start: 20041209, end: 20041212
  2. FLUCONAZOLE [Suspect]
     Indication: CANDIDIASIS
     Dosage: 1 TABLET DAILY ORAL
     Route: 048
     Dates: start: 20041209, end: 20041212
  3. NEULASTA [Concomitant]

REACTIONS (1)
  - STEVENS-JOHNSON SYNDROME [None]
